FAERS Safety Report 9714125 (Version 2)
Quarter: 2015Q3

REPORT INFORMATION
  Report Type: Spontaneous
  Country: US (occurrence: US)
  Receive Date: 20131126
  Receipt Date: 20150803
  Transmission Date: 20151125
  Serious: No
  Sender: FDA-Public Use
  Company Number: US-GILEAD-2008-0018921

PATIENT
  Age: 44 Year
  Sex: Female
  Weight: 79.83 kg

DRUGS (23)
  1. LETAIRIS [Suspect]
     Active Substance: AMBRISENTAN
     Indication: PULMONARY ARTERIAL HYPERTENSION
     Route: 048
     Dates: start: 20070823
  2. COUMADIN [Concomitant]
     Active Substance: WARFARIN SODIUM
  3. POTASSIUM CHLORIDE. [Concomitant]
     Active Substance: POTASSIUM CHLORIDE
  4. ADVAIR DISKUS [Concomitant]
     Active Substance: FLUTICASONE PROPIONATE\SALMETEROL XINAFOATE
  5. LIDOCAINE. [Concomitant]
     Active Substance: LIDOCAINE
  6. RESTASIS EYE EMULS [Concomitant]
  7. PREVACID [Concomitant]
     Active Substance: LANSOPRAZOLE
  8. REVATIO [Concomitant]
     Active Substance: SILDENAFIL CITRATE
  9. DIGOXIN. [Concomitant]
     Active Substance: DIGOXIN
  10. GABAPENTIN. [Concomitant]
     Active Substance: GABAPENTIN
  11. LECITHIN [Concomitant]
     Active Substance: LECITHIN
  12. ALDACTONE [Concomitant]
     Active Substance: SPIRONOLACTONE
  13. LASIX [Concomitant]
     Active Substance: FUROSEMIDE
  14. AMITRIPTYLINE [Concomitant]
     Active Substance: AMITRIPTYLINE
     Route: 061
  15. SINGULAIR [Concomitant]
     Active Substance: MONTELUKAST SODIUM
  16. CLARITIN [Concomitant]
     Active Substance: LORATADINE
  17. PAMINE FORTE [Concomitant]
     Active Substance: METHSCOPOLAMINE BROMIDE
  18. POLOXAMER [Concomitant]
     Active Substance: POLOXAMER
  19. IMODIUM AD [Concomitant]
     Active Substance: LOPERAMIDE HYDROCHLORIDE
  20. TYLENOL EX-STRENGTH PM [Concomitant]
  21. REMODULIN [Concomitant]
     Active Substance: TREPROSTINIL
  22. METHIMAZOLE. [Concomitant]
     Active Substance: METHIMAZOLE
  23. KETAMINE [Concomitant]
     Active Substance: KETAMINE

REACTIONS (1)
  - Rash [Recovered/Resolved]
